FAERS Safety Report 6474719-5 (Version None)
Quarter: 2009Q4

REPORT INFORMATION
  Report Type: 
  Country: None (occurrence: None)
  Receive Date: 20091204
  Receipt Date: 20091127
  Transmission Date: 20100525
  Serious: Yes (Other)
  Sender: FDA-Public Use
  Company Number: B0561636C

PATIENT
  Sex: Female
  Weight: 44 kg

DRUGS (1)
  1. PAZOPANIB [Suspect]
     Indication: SARCOMA
     Dosage: 800MG PER DAY
     Route: 048
     Dates: start: 20090212, end: 20091105

REACTIONS (2)
  - FATIGUE [None]
  - HAEMOGLOBIN DECREASED [None]
